FAERS Safety Report 7676189-8 (Version None)
Quarter: 2011Q3

REPORT INFORMATION
  Report Type: 
  Country: None (occurrence: None)
  Receive Date: 20110805
  Receipt Date: 20110723
  Transmission Date: 20111222
  Serious: Yes (Hospitalization)
  Sender: FDA-Public Use
  Company Number: 2011P1007947

PATIENT
  Age: 56 Year
  Sex: Male
  Weight: 83.9154 kg

DRUGS (2)
  1. FENTANYL [Suspect]
     Indication: BACK PAIN
     Dosage: 1 PATCH;Q72H;TDER
     Route: 062
     Dates: start: 20070101
  2. TRAMADOL HCL [Concomitant]

REACTIONS (5)
  - BACK PAIN [None]
  - FALL [None]
  - UNEVALUABLE EVENT [None]
  - DIVORCED [None]
  - CONDITION AGGRAVATED [None]
